FAERS Safety Report 5373730-5 (Version None)
Quarter: 2007Q2

REPORT INFORMATION
  Report Type: 
  Country: None (occurrence: None)
  Receive Date: 20070615
  Receipt Date: 20060731
  Transmission Date: 20071010
  Serious: Yes (Other)
  Sender: FDA-Public Use
  Company Number: 200520824US

PATIENT
  Age: 64 Year
  Sex: Female

DRUGS (10)
  1. INSULIN [Suspect]
     Indication: DIABETES MELLITUS INSULIN-DEPENDENT
     Dosage: 25 U INJ
     Route: 042
  2. OPTICLIK [Suspect]
     Indication: DIABETES MELLITUS NON-INSULIN-DEPENDENT
  3. GLYBURIDE [Concomitant]
  4. METFORMIN HYDROCHLORIDE [Concomitant]
  5. PIOGLITAZONE [Concomitant]
  6. HYDROCHLOROTHIAZIDE [Concomitant]
  7. ASPIRIN [Concomitant]
  8. LISINOPRIL [Concomitant]
  9. ATORVASTATIN CALCIUM (LIPITOR) [Concomitant]
  10. MULTI-VITAMIN [Concomitant]

REACTIONS (1)
  - HYPERGLYCAEMIA [None]
